FAERS Safety Report 16047397 (Version 1)
Quarter: 2019Q1

REPORT INFORMATION
  Report Type: Spontaneous
  Country: US (occurrence: US)
  Receive Date: 20190307
  Receipt Date: 20190307
  Transmission Date: 20190418
  Serious: Yes (Hospitalization)
  Sender: FDA-Public Use
  Company Number: US-PERRIGO-19US002431

PATIENT
  Age: 81 Year
  Sex: Male
  Weight: 29.93 kg

DRUGS (9)
  1. ATORVASTATIN [Concomitant]
     Active Substance: ATORVASTATIN
     Dosage: UNK, UNK
     Route: 048
  2. LISINOPRIL. [Concomitant]
     Active Substance: LISINOPRIL
     Indication: HYPERTENSION
     Dosage: 5MG, QD
     Route: 048
     Dates: start: 201804
  3. OXYCONTIN [Concomitant]
     Active Substance: OXYCODONE HYDROCHLORIDE
     Indication: PAIN
     Dosage: 60 MG, BID
     Route: 048
     Dates: start: 1999
  4. CLOPIDOGREL [Concomitant]
     Active Substance: CLOPIDOGREL BISULFATE
     Indication: ANTICOAGULANT THERAPY
     Dosage: UNK,UNK
     Route: 048
     Dates: start: 201804
  5. OXYMETAZOLINE HYDROCHLORIDE. [Suspect]
     Active Substance: OXYMETAZOLINE HYDROCHLORIDE
     Indication: NASAL CONGESTION
     Dosage: 2 SPRAYS EACH NOSTRIL, QD
     Route: 045
     Dates: start: 2018, end: 20190214
  6. AFRIN [Suspect]
     Active Substance: OXYMETAZOLINE
     Indication: NASAL CONGESTION
     Dosage: 2 SPRAYS EACH NOSTRIL, QD
     Route: 045
     Dates: start: 2018, end: 20190214
  7. AFRIN [Suspect]
     Active Substance: OXYMETAZOLINE
     Indication: ACCIDENTAL EXPOSURE TO PRODUCT
     Dosage: UNK, QD
     Route: 048
     Dates: start: 2018, end: 20190214
  8. OXYCODONE [Concomitant]
     Active Substance: OXYCODONE
     Indication: PAIN
     Dosage: 30 MG, Q 6 TO 8 HOURS PRN
     Route: 048
     Dates: start: 1999
  9. OXYMETAZOLINE HYDROCHLORIDE. [Suspect]
     Active Substance: OXYMETAZOLINE HYDROCHLORIDE
     Indication: ACCIDENTAL EXPOSURE TO PRODUCT
     Dosage: UNKNOWN, QD
     Route: 048

REACTIONS (14)
  - Epistaxis [Recovered/Resolved]
  - Melaena [Recovered/Resolved]
  - Asthenia [Recovering/Resolving]
  - Dehydration [Recovered/Resolved]
  - Fatigue [Recovering/Resolving]
  - Accidental exposure to product [Recovered/Resolved]
  - Dizziness [Recovering/Resolving]
  - Haemoptysis [Recovered/Resolved]
  - Syncope [Recovered/Resolved]
  - Incorrect product administration duration [Recovered/Resolved]
  - Haematocrit decreased [Recovered/Resolved]
  - Volume blood decreased [Recovered/Resolved]
  - Tremor [Recovered/Resolved]
  - Wrong technique in product usage process [Recovered/Resolved]

NARRATIVE: CASE EVENT DATE: 2018
